FAERS Safety Report 7575022-2 (Version None)
Quarter: 2011Q2

REPORT INFORMATION
  Report Type: 
  Country: None (occurrence: None)
  Receive Date: 20110627
  Receipt Date: 20110607
  Transmission Date: 20111010
  Serious: Yes (Other)
  Sender: FDA-Public Use
  Company Number: US-BAYER-2011-049871

PATIENT
  Age: 48 Year
  Sex: Female

DRUGS (2)
  1. MIRENA [Suspect]
     Indication: MENORRHAGIA
     Dosage: 20 MCG/24HR, UNK
     Dates: start: 20090409, end: 20110518
  2. MIRENA [Suspect]
     Dosage: 20 MCG/24HR, CONT
     Route: 015
     Dates: start: 20110518, end: 20110519

REACTIONS (4)
  - DEVICE EXPULSION [None]
  - POLYP [None]
  - DEVICE DISLOCATION [None]
  - VAGINAL HAEMORRHAGE [None]
